FAERS Safety Report 6203209-X (Version None)
Quarter: 2009Q2

REPORT INFORMATION
  Report Type: 
  Country: None (occurrence: None)
  Receive Date: 20090527
  Receipt Date: 20090518
  Transmission Date: 20091009
  Serious: Yes (Other)
  Sender: FDA-Public Use
  Company Number: GB-BAYER-200911791BNE

PATIENT
  Age: 39 Year
  Sex: Female

DRUGS (2)
  1. INTERFERON BETA [Suspect]
     Indication: DRUG USE FOR UNKNOWN INDICATION
  2. BACLOFEN [Suspect]
     Indication: MULTIPLE SCLEROSIS

REACTIONS (1)
  - ONYCHOMYCOSIS [None]
